FAERS Safety Report 11125283 (Version 3)
Quarter: 2015Q2

REPORT INFORMATION
  Report Type: Report from Study
  Country: DK (occurrence: DK)
  Receive Date: 20150520
  Receipt Date: 20150626
  Transmission Date: 20150821
  Serious: No
  Sender: FDA-Public Use
  Company Number: DK-NOVOPROD-427597

PATIENT
  Age: 32 Year
  Sex: Female
  Weight: 80 kg

DRUGS (2)
  1. RECOMBINANT FACTOR XIII HUMAN [Suspect]
     Active Substance: FACTOR XIII CONCENTRATE (HUMAN)
     Indication: FACTOR XIII DEFICIENCY
  2. RECOMBINANT FACTOR XIII HUMAN [Suspect]
     Active Substance: FACTOR XIII CONCENTRATE (HUMAN)
     Indication: PROPHYLAXIS
     Dosage: UNK
     Route: 065
     Dates: start: 20130517

REACTIONS (1)
  - Chest discomfort [Recovered/Resolved]

NARRATIVE: CASE EVENT DATE: 20130517
